FAERS Safety Report 6540579-7 (Version None)
Quarter: 2010Q1

REPORT INFORMATION
  Report Type: 
  Country: None (occurrence: None)
  Receive Date: 20100118
  Receipt Date: 20100112
  Transmission Date: 20100710
  Serious: Yes (Disabling, Other)
  Sender: FDA-Public Use
  Company Number: US-BAYER-200915948NA

PATIENT
  Age: 35 Year
  Sex: Male

DRUGS (7)
  1. BETASERON [Suspect]
     Indication: RELAPSING-REMITTING MULTIPLE SCLEROSIS
     Dosage: TOTAL DAILY DOSE: 2 MIU
     Route: 058
     Dates: start: 20090201
  2. BETASERON [Suspect]
     Dosage: TOTAL DAILY DOSE: 4 MIU
     Route: 058
  3. BETASERON [Suspect]
     Dosage: TOTAL DAILY DOSE: 6 MIU
     Route: 058
  4. BETASERON [Suspect]
     Dosage: TOTAL DAILY DOSE: 8 MIU
     Route: 058
  5. PROVIGIL [Suspect]
     Indication: FATIGUE
     Route: 065
  6. PROVIGIL [Suspect]
     Route: 065
  7. MOTRIN [Concomitant]
     Indication: PREMEDICATION

REACTIONS (26)
  - AGGRESSION [None]
  - ANGER [None]
  - CHILLS [None]
  - DEMENTIA [None]
  - DEMENTIA ALZHEIMER'S TYPE [None]
  - DEPRESSION [None]
  - ERYTHEMA [None]
  - EXCORIATION [None]
  - FATIGUE [None]
  - HYPOAESTHESIA [None]
  - INFLUENZA LIKE ILLNESS [None]
  - INJECTION SITE HAEMORRHAGE [None]
  - INJECTION SITE PAIN [None]
  - INJECTION SITE RASH [None]
  - INJECTION SITE REACTION [None]
  - LOSS OF CONSCIOUSNESS [None]
  - MOBILITY DECREASED [None]
  - MOOD SWINGS [None]
  - MULTIPLE SCLEROSIS [None]
  - PALPITATIONS [None]
  - PARAESTHESIA [None]
  - SCREAMING [None]
  - TESTICULAR CYST [None]
  - TESTICULAR PAIN [None]
  - THINKING ABNORMAL [None]
  - URINARY INCONTINENCE [None]
